FAERS Safety Report 6206190-2 (Version None)
Quarter: 2009Q2

REPORT INFORMATION
  Report Type: 
  Country: None (occurrence: None)
  Receive Date: 20090528
  Receipt Date: 20080624
  Transmission Date: 20091009
  Serious: No
  Sender: FDA-Public Use
  Company Number: US-KINGPHARMUSA00001-K200800746

PATIENT
  Age: 41 Year
  Sex: Male

DRUGS (4)
  1. AVINZA [Suspect]
     Indication: PAIN
     Dosage: 120 MG, BID
     Route: 048
     Dates: start: 20050101
  2. AVINZA [Suspect]
     Dosage: 120 MG, TID
     Route: 048
     Dates: start: 20080201
  3. VALIUM [Concomitant]
  4. OXYCODONE HCL [Concomitant]
     Dosage: 5 MG, 1-2 TABLETS QOD
     Route: 048

REACTIONS (4)
  - ABDOMINAL DISCOMFORT [None]
  - DRUG DIVERSION [None]
  - DRUG INEFFECTIVE [None]
  - VOMITING [None]
